FAERS Safety Report 9351683 (Version 11)
Quarter: 2014Q2

REPORT INFORMATION
  Report Type: Spontaneous
  Country: US (occurrence: US)
  Receive Date: 20130617
  Receipt Date: 20140414
  Transmission Date: 20141212
  Serious: No
  Sender: FDA-Public Use
  Company Number: US-009507513-1305USA012083

PATIENT
  Age: 61 Year
  Sex: Male

DRUGS (10)
  1. REBETOL [Suspect]
     Indication: CHRONIC HEPATITIS C
     Dosage: (1000 MG, 1 IN 1 D)
     Route: 065
     Dates: start: 20130417, end: 2013
  2. REBETOL [Suspect]
     Dosage: (800 MG,1 IN 1 D)
     Route: 065
     Dates: start: 20130521
  3. VICTRELIS [Suspect]
     Indication: CHRONIC HEPATITIS C
     Dosage: 1 DF, TID, 3000 MG (1000 MG, 3 IN 1 D)
     Route: 065
     Dates: start: 20130515, end: 20131218
  4. PEGASYS [Suspect]
     Indication: CHRONIC HEPATITIS C
     Dosage: 180 UG, 1 IN 1 WK
     Route: 058
     Dates: start: 20130417, end: 2013
  5. PEGASYS [Suspect]
     Dosage: 90 UG, 1 IN 1 WK
     Route: 058
     Dates: start: 20130808
  6. PEGASYS [Suspect]
     Dosage: 135 UG, 1 IN 1 WK
     Route: 058
     Dates: start: 20140205, end: 20140312
  7. ATENOLOL [Concomitant]
     Indication: HYPERTENSION
     Dosage: UNK
     Dates: start: 20130505, end: 20130528
  8. PRINIVIL [Concomitant]
     Indication: HYPERTENSION
     Dosage: 10 MG 1 IN 1 D
     Route: 048
     Dates: start: 20120603
  9. PRINIVIL [Concomitant]
     Dosage: 40 MG (20 MG, 2 IN 1 D)
     Route: 048
     Dates: start: 20130528, end: 20130528
  10. PRILOSEC [Concomitant]
     Route: 048

REACTIONS (16)
  - Dizziness [Not Recovered/Not Resolved]
  - Red blood cell count decreased [Unknown]
  - Anaemia [Unknown]
  - Fatigue [Unknown]
  - Dizziness [Recovering/Resolving]
  - Hypotension [Recovering/Resolving]
  - Haemoglobin decreased [Recovering/Resolving]
  - Injection site pruritus [Not Recovered/Not Resolved]
  - Injection site rash [Recovered/Resolved]
  - White blood cell count decreased [Unknown]
  - Platelet count decreased [Unknown]
  - Headache [Not Recovered/Not Resolved]
  - Productive cough [Unknown]
  - Overdose [Unknown]
  - Blood pressure increased [Recovered/Resolved]
  - Abdominal discomfort [Unknown]
